FAERS Safety Report 5627687-X (Version None)
Quarter: 2008Q1

REPORT INFORMATION
  Report Type: 
  Country: None (occurrence: None)
  Receive Date: 20080215
  Receipt Date: 20080215
  Transmission Date: 20080703
  Serious: Yes (Other)
  Sender: FDA-Public Use
  Company Number: A0709912A

PATIENT
  Age: 39 Year
  Sex: Female
  Weight: 90.9 kg

DRUGS (1)
  1. ALLI [Suspect]
     Indication: WEIGHT LOSS DIET
     Route: 048

REACTIONS (2)
  - ANKLE FRACTURE [None]
  - WEIGHT INCREASED [None]
